FAERS Safety Report 4952614-8 (Version None)
Quarter: 2006Q1

REPORT INFORMATION
  Report Type: 
  Country: None (occurrence: None)
  Receive Date: 20060317
  Receipt Date: 20060308
  Transmission Date: 20060701
  Serious: Yes (Hospitalization, Other)
  Sender: FDA-Public Use
  Company Number: HQWYE002512MAR03

PATIENT
  Age: 40 Year
  Sex: Male
  Weight: 74.55 kg

DRUGS (1)
  1. MYLOTARG [Suspect]
     Indication: ACUTE MYELOID LEUKAEMIA
     Dosage: 9 MG/M^2 1X PER 1 DAY, INTRAVENOUS
     Route: 042
     Dates: start: 20030205, end: 20030205

REACTIONS (3)
  - INFUSION RELATED REACTION [None]
  - NAUSEA [None]
  - VOMITING [None]
